FAERS Safety Report 24608342 (Version 2)
Quarter: 2024Q4

REPORT INFORMATION
  Report Type: Spontaneous
  Country: IT (occurrence: IT)
  Receive Date: 20241112
  Receipt Date: 20241205
  Transmission Date: 20250114
  Serious: Yes (Hospitalization, Other)
  Sender: SANOFI AVENTIS
  Company Number: None

PATIENT
  Sex: Male

DRUGS (14)
  1. PREDNISONE [Suspect]
     Active Substance: PREDNISONE
     Indication: Immunosuppressant drug therapy
     Dosage: 20 MG, QD (D19-D30)
  2. PREDNISONE [Suspect]
     Active Substance: PREDNISONE
     Dosage: 20 MG, QD (D3-D14)
  3. PREDNISONE [Suspect]
     Active Substance: PREDNISONE
     Dosage: 5 MG, QD (AFTER TWO MONTHS OF FOLLOW-UP)
  4. ANTI-THYMOCYTE GLOBULIN (RABBIT) NOS [Suspect]
     Active Substance: LAPINE T-LYMPHOCYTE IMMUNE GLOBULIN
     Indication: Immunosuppressant drug therapy
     Dosage: 5 MG/KG (TOTAL DOSE D0-D4)
     Route: 041
  5. MYCOPHENOLATE MOFETIL [Suspect]
     Active Substance: MYCOPHENOLATE MOFETIL
     Dosage: 2000 MG, QD (POST-OPERATIVE DAY 5, BETWEEN 1000 MG AND 2000 MG A DAY (TOTAL DOSE))
     Route: 048
  6. MYCOPHENOLATE MOFETIL [Suspect]
     Active Substance: MYCOPHENOLATE MOFETIL
     Dosage: 1000 MG, QD (POST-OPERATIVE DAY 5, BETWEEN 1000 MG AND 2000 MG A DAY (TOTAL DOSE))
     Route: 048
  7. METHYLPREDNISOLONE [Suspect]
     Active Substance: METHYLPREDNISOLONE
     Indication: Immunosuppressant drug therapy
     Dosage: 500 MG, QD (D0-D2)
     Route: 042
  8. METHYLPREDNISOLONE [Suspect]
     Active Substance: METHYLPREDNISOLONE
     Dosage: 500 MG, QD (D15-D18)
     Route: 042
  9. HUMAN IMMUNOGLOBULIN G [Suspect]
     Active Substance: HUMAN IMMUNOGLOBULIN G
     Dosage: 2 G/KG (BETWEEN DAY 5 AND 12)
     Route: 041
  10. HUMAN IMMUNOGLOBULIN G [Suspect]
     Active Substance: HUMAN IMMUNOGLOBULIN G
     Dosage: 2 G/KG (TOTAL-DOSE ON DAY 15, 16, AND 17)
     Route: 041
  11. TACROLIMUS [Suspect]
     Active Substance: TACROLIMUS
     Dosage: STANDARD-RELEASE, ADJUSTED TO ACHIEVE A TROUGH LEVEL OF 12?15 NG/ML DURING THE FIRST MONTH
     Route: 048
  12. ECULIZUMAB [Suspect]
     Active Substance: ECULIZUMAB
     Dosage: 900 MG, QD (D0)
     Route: 042
  13. ECULIZUMAB [Suspect]
     Active Substance: ECULIZUMAB
     Dosage: 900 MG, QD (ON DAY 18, ANOTHER SHOT)
     Route: 042
  14. OBINUTUZUMAB [Suspect]
     Active Substance: OBINUTUZUMAB
     Indication: Transplant rejection
     Dosage: 1000 MG, QD (D21)
     Route: 042

REACTIONS (3)
  - Organising pneumonia [Unknown]
  - Cytomegalovirus viraemia [Unknown]
  - COVID-19 [Unknown]
